FAERS Safety Report 10311407 (Version 1)
Quarter: 2014Q3

REPORT INFORMATION
  Report Type: Report from Study
  Country: GB (occurrence: GB)
  Receive Date: 20140717
  Receipt Date: 20140717
  Transmission Date: 20150326
  Serious: Yes (Death)
  Sender: FDA-Public Use
  Company Number: GB-ASTELLAS-2014US008435

PATIENT
  Age: 65 Year
  Sex: Male

DRUGS (3)
  1. DOMPERIDONE [Concomitant]
     Active Substance: DOMPERIDONE
     Indication: LUNG NEOPLASM MALIGNANT
     Dosage: 20 UNK, UNKNOWN FREQ.
     Route: 048
     Dates: end: 20121120
  2. ERLOTINIB [Suspect]
     Active Substance: ERLOTINIB
     Indication: LUNG NEOPLASM MALIGNANT
     Dosage: 100 UNK, UNKNOWN FREQ.
     Route: 048
     Dates: end: 20121120
  3. LOPERAMIDE [Concomitant]
     Active Substance: LOPERAMIDE
     Indication: LUNG NEOPLASM MALIGNANT
     Dosage: 20 UNK, UNKNOWN FREQ.
     Route: 048
     Dates: end: 20121120

REACTIONS (1)
  - Death [Fatal]
